FAERS Safety Report 10046987 (Version 3)
Quarter: 2014Q2

REPORT INFORMATION
  Report Type: Spontaneous
  Country: US (occurrence: US)
  Receive Date: 20140331
  Receipt Date: 20140610
  Transmission Date: 20141212
  Serious: No
  Sender: FDA-Public Use
  Company Number: US-009507513-1403USA010552

PATIENT
  Age: 65 Year
  Sex: Female
  Weight: 100.23 kg

DRUGS (3)
  1. COZAAR [Suspect]
     Dosage: UNK
     Route: 048
  2. PAROXETINE [Suspect]
     Dosage: UNK
  3. TOPIRAMATE [Suspect]
     Dosage: UNK

REACTIONS (1)
  - Hepatic cirrhosis [Not Recovered/Not Resolved]
